FAERS Safety Report 4297314-5 (Version None)
Quarter: 2004Q1

REPORT INFORMATION
  Report Type: 
  Country: None (occurrence: None)
  Receive Date: 20040212
  Receipt Date: 20030516
  Transmission Date: 20041129
  Serious: Yes (Other)
  Sender: FDA-Public Use
  Company Number: A03200301002

PATIENT
  Sex: Female

DRUGS (1)
  1. AMBIEN [Suspect]

REACTIONS (3)
  - AMNESIA [None]
  - DRUG WITHDRAWAL CONVULSIONS [None]
  - HEADACHE [None]
